FAERS Safety Report 8592206-5 (Version None)
Quarter: 2012Q3

REPORT INFORMATION
  Report Type: 
  Country: None (occurrence: None)
  Receive Date: 20120814
  Receipt Date: 20120808
  Transmission Date: 20120928
  Serious: No
  Sender: FDA-Public Use
  Company Number: US-B.I. PHARMACEUTICALS,INC./RIDGEFIELD-2012-BP-17831BP

PATIENT
  Age: 70 Year
  Sex: Female

DRUGS (6)
  1. MULTIVITAMIN [Concomitant]
  2. TOPROL-XL [Concomitant]
  3. POTASSIUM [Concomitant]
  4. LASIX [Concomitant]
  5. DIOVAN [Concomitant]
  6. PRADAXA [Suspect]
     Indication: ATRIAL FIBRILLATION
     Dosage: 300 MG
     Dates: start: 20120403

REACTIONS (2)
  - DYSPEPSIA [None]
  - DYSGEUSIA [None]
